FAERS Safety Report 24527822 (Version 4)
Quarter: 2025Q1

REPORT INFORMATION
  Report Type: Spontaneous
  Country: US (occurrence: US)
  Receive Date: 20241021
  Receipt Date: 20250125
  Transmission Date: 20250409
  Serious: No
  Sender: BRISTOL-MYERS SQUIBB COMPANY
  Company Number: US-BRISTOL-MYERS SQUIBB COMPANY-2024-164623

PATIENT
  Age: 42 Year
  Sex: Female

DRUGS (3)
  1. ORENCIA [Suspect]
     Active Substance: ABATACEPT
     Indication: Rheumatoid arthritis
     Route: 058
     Dates: start: 202409
  2. ORENCIA [Suspect]
     Active Substance: ABATACEPT
     Route: 058
     Dates: start: 202409
  3. ORENCIA [Suspect]
     Active Substance: ABATACEPT
     Route: 058
     Dates: start: 202409

REACTIONS (7)
  - Diarrhoea [Unknown]
  - Joint swelling [Unknown]
  - Arthralgia [Unknown]
  - Rhinorrhoea [Unknown]
  - Asthenia [Unknown]
  - Fatigue [Unknown]
  - Hypoaesthesia [Not Recovered/Not Resolved]
